FAERS Safety Report 7019113-3 (Version None)
Quarter: 2010Q3

REPORT INFORMATION
  Report Type: 
  Country: None (occurrence: None)
  Receive Date: 20100928
  Receipt Date: 20100926
  Transmission Date: 20110219
  Serious: Yes (Hospitalization)
  Sender: FDA-Public Use
  Company Number: A0883640A

PATIENT
  Sex: Female
  Weight: 80.9 kg

DRUGS (1)
  1. PAZOPANIB [Suspect]
     Indication: THYROID CANCER
     Dosage: 8800MG CUMULATIVE DOSE
     Route: 048
     Dates: start: 20091123, end: 20100903

REACTIONS (1)
  - THROMBOSIS [None]
